FAERS Safety Report 13415630 (Version 2)
Quarter: 2017Q2

REPORT INFORMATION
  Report Type: Spontaneous
  Country: US (occurrence: US)
  Receive Date: 20170407
  Receipt Date: 20170428
  Transmission Date: 20170830
  Serious: No
  Sender: FDA-Public Use
  Company Number: US-BAYER-2017-066218

PATIENT
  Age: 50 Year
  Sex: Female

DRUGS (2)
  1. CLIMARA PRO [Suspect]
     Active Substance: ESTRADIOL\LEVONORGESTREL
     Indication: MENOPAUSAL SYMPTOMS
  2. CLIMARA PRO [Suspect]
     Active Substance: ESTRADIOL\LEVONORGESTREL
     Indication: NIGHT SWEATS
     Dosage: 0.045 MG ESTRADIOL/0.15 MG LEVONORGESTREL
     Route: 062
     Dates: start: 20170322, end: 20170410

REACTIONS (2)
  - Product adhesion issue [None]
  - Drug ineffective [Not Recovered/Not Resolved]

NARRATIVE: CASE EVENT DATE: 201703
